FAERS Safety Report 6888055-6 (Version None)
Quarter: 2010Q3

REPORT INFORMATION
  Report Type: 
  Country: None (occurrence: None)
  Receive Date: 20100730
  Receipt Date: 20100622
  Transmission Date: 20110219
  Serious: Yes (Death, Other)
  Sender: FDA-Public Use
  Company Number: US-BAXTER-2010BH012432

PATIENT
  Age: 54 Year
  Sex: Male

DRUGS (5)
  1. HEPARIN SODIUM [Suspect]
     Indication: PERITONEAL DIALYSIS
     Route: 040
     Dates: start: 20070416, end: 20070416
  2. HEPARIN SODIUM [Suspect]
     Route: 040
     Dates: start: 20070419, end: 20070419
  3. HEPARIN SODIUM [Suspect]
     Route: 040
     Dates: start: 20070421, end: 20070421
  4. HEPARIN SODIUM [Suspect]
     Route: 040
     Dates: start: 20070422, end: 20070422
  5. HEPARIN SODIUM [Suspect]
     Route: 040
     Dates: start: 20070423, end: 20070423

REACTIONS (34)
  - ABDOMINAL PAIN [None]
  - BURNING SENSATION [None]
  - CARDIAC ARREST [None]
  - CHEST PAIN [None]
  - DIARRHOEA [None]
  - DIZZINESS [None]
  - DRUG ADMINISTRATION ERROR [None]
  - DRUG INEFFECTIVE [None]
  - DYSPEPSIA [None]
  - DYSPNOEA [None]
  - ERYTHEMA [None]
  - FLUSHING [None]
  - HEADACHE [None]
  - HEPARIN-INDUCED THROMBOCYTOPENIA [None]
  - HYPERHIDROSIS [None]
  - HYPERSENSITIVITY [None]
  - HYPOAESTHESIA [None]
  - HYPOTENSION [None]
  - LACRIMATION INCREASED [None]
  - LOSS OF CONSCIOUSNESS [None]
  - MALAISE [None]
  - NAUSEA [None]
  - PALLOR [None]
  - PARAESTHESIA [None]
  - PERITONITIS [None]
  - PHARYNGEAL OEDEMA [None]
  - RENAL FAILURE CHRONIC [None]
  - RESTLESSNESS [None]
  - SEPSIS [None]
  - SEPTIC SHOCK [None]
  - TACHYCARDIA [None]
  - THIRST [None]
  - TRISMUS [None]
  - VOMITING [None]
